FAERS Safety Report 6508304-3 (Version None)
Quarter: 2009Q4

REPORT INFORMATION
  Report Type: 
  Country: None (occurrence: None)
  Receive Date: 20091221
  Receipt Date: 20090203
  Transmission Date: 20100525
  Serious: No
  Sender: FDA-Public Use
  Company Number: US-ASTRAZENECA-2006UW15959

PATIENT
  Age: 59 Year
  Sex: Female
  Weight: 86.2 kg

DRUGS (5)
  1. CRESTOR [Suspect]
     Indication: BLOOD CHOLESTEROL
     Route: 048
     Dates: start: 20040101
  2. CRESTOR [Suspect]
     Route: 048
     Dates: start: 20060701
  3. METOPROLOL TARTRATE [Suspect]
  4. AMILORIDE HYDROCHLORIDE [Suspect]
     Indication: BLOOD PRESSURE
  5. RES-Q [Concomitant]

REACTIONS (5)
  - ASTHENIA [None]
  - DRUG INTERACTION [None]
  - MUSCLE SPASMS [None]
  - MUSCLE TWITCHING [None]
  - RECTAL HAEMORRHAGE [None]
